FAERS Safety Report 15028048 (Version 1)
Quarter: 2018Q2

REPORT INFORMATION
  Report Type: Spontaneous
  Country: AR (occurrence: AR)
  Receive Date: 20180619
  Receipt Date: 20180619
  Transmission Date: 20180711
  Serious: Yes (Hospitalization)
  Sender: FDA-Public Use
  Company Number: AR-ACTELION-A-CH2018-173823

PATIENT
  Age: 43 Year
  Sex: Female
  Weight: 30 kg

DRUGS (2)
  1. VELETRI [Suspect]
     Active Substance: EPOPROSTENOL
     Indication: PULMONARY ARTERIAL HYPERTENSION
     Dosage: 1.5 MG, QD
     Route: 042
     Dates: start: 201804
  2. OPSUMIT [Concomitant]
     Active Substance: MACITENTAN
     Route: 048

REACTIONS (1)
  - Respiratory disorder [Unknown]

NARRATIVE: CASE EVENT DATE: 20180610
